FAERS Safety Report 7548641-7 (Version None)
Quarter: 2011Q2

REPORT INFORMATION
  Report Type: 
  Country: None (occurrence: None)
  Receive Date: 20110524
  Receipt Date: 20110221
  Transmission Date: 20111010
  Serious: No
  Sender: FDA-Public Use
  Company Number: 026155

PATIENT
  Sex: Male
  Weight: 56.7 kg

DRUGS (11)
  1. PREDNISONE [Concomitant]
  2. ROXICODONE [Concomitant]
  3. PREVACID [Concomitant]
  4. MIRAPEX [Concomitant]
  5. PRAZOSIN HCL [Concomitant]
  6. FOLIC ACID [Concomitant]
  7. PROMETHAZINE [Concomitant]
  8. LORAZEPAM [Concomitant]
  9. CIMZIA [Suspect]
     Indication: CROHN'S DISEASE
     Dosage: (200 MG 1X/2 WEEKS SUBCUTANEOUS)
     Route: 058
     Dates: start: 20090130
  10. CIMZIA [Suspect]
     Indication: RHEUMATOID ARTHRITIS
     Dosage: (200 MG 1X/2 WEEKS SUBCUTANEOUS)
     Route: 058
     Dates: start: 20090130
  11. METHADONE HCL [Concomitant]

REACTIONS (5)
  - NAUSEA [None]
  - APHAGIA [None]
  - ABDOMINAL PAIN UPPER [None]
  - ANAL ABSCESS [None]
  - VOMITING [None]
